FAERS Safety Report 8385442-4 (Version None)
Quarter: 2012Q2

REPORT INFORMATION
  Report Type: 
  Country: None (occurrence: None)
  Receive Date: 20120525
  Receipt Date: 20120519
  Transmission Date: 20120825
  Serious: No
  Sender: FDA-Public Use
  Company Number: US-BIOGENIDEC-2012BI017779

PATIENT
  Age: 57 Year
  Sex: Female

DRUGS (2)
  1. TYSABRI [Suspect]
     Indication: MULTIPLE SCLEROSIS
     Route: 042
     Dates: start: 20120326
  2. AVONEX [Concomitant]
     Indication: MULTIPLE SCLEROSIS
     Route: 030
     Dates: start: 20010606

REACTIONS (6)
  - HYPOAESTHESIA [None]
  - MYALGIA [None]
  - ARTHRALGIA [None]
  - PRURITUS [None]
  - INCREASED TENDENCY TO BRUISE [None]
  - BODY TEMPERATURE INCREASED [None]
